FAERS Safety Report 12141802 (Version 2)
Quarter: 2016Q1

REPORT INFORMATION
  Report Type: Report from Study
  Country: US (occurrence: US)
  Receive Date: 20160303
  Receipt Date: 20160304
  Transmission Date: 20160526
  Serious: Yes (Other)
  Sender: FDA-Public Use
  Company Number: US-ABBVIE-16K-163-1569749-00

PATIENT
  Age: 56 Year
  Sex: Male

DRUGS (1)
  1. HUMIRA [Suspect]
     Active Substance: ADALIMUMAB
     Indication: RHEUMATOID ARTHRITIS
     Route: 058

REACTIONS (8)
  - Drug ineffective [Unknown]
  - Arthropathy [Unknown]
  - Joint dislocation [Unknown]
  - Cardiac pacemaker insertion [Unknown]
  - Finger deformity [Unknown]
  - Musculoskeletal disorder [Unknown]
  - Cardiac disorder [Unknown]
  - Exostosis [Unknown]

NARRATIVE: CASE EVENT DATE: 201602
